FAERS Safety Report 20616578 (Version 2)
Quarter: 2022Q2

REPORT INFORMATION
  Report Type: Spontaneous
  Country: US (occurrence: US)
  Receive Date: 20220321
  Receipt Date: 20220520
  Transmission Date: 20220721
  Serious: Yes (Other)
  Sender: FDA-Public Use
  Company Number: US-PFIZER INC-2021276964

PATIENT
  Age: 67 Year
  Sex: Male
  Weight: 88.9 kg

DRUGS (1)
  1. VYNDAMAX [Suspect]
     Active Substance: TAFAMIDIS
     Indication: Familial amyloidosis
     Dosage: 61 MG, 1X/DAY
     Dates: start: 2019

REACTIONS (8)
  - Pneumothorax [Unknown]
  - Intra-abdominal fluid collection [Unknown]
  - Fluid retention [Not Recovered/Not Resolved]
  - Rotator cuff syndrome [Unknown]
  - Cardiac disorder [Unknown]
  - Swelling [Not Recovered/Not Resolved]
  - Condition aggravated [Not Recovered/Not Resolved]
  - Off label use [Unknown]

NARRATIVE: CASE EVENT DATE: 20190101
